FAERS Safety Report 9820383 (Version 2)
Quarter: 2013Q4

REPORT INFORMATION
  Report Type: Spontaneous
  Country: US (occurrence: None)
  Receive Date: 20131028
  Receipt Date: 20131028
  Transmission Date: 20140711
  Serious: Yes (Hospitalization)
  Sender: FDA-Public Use
  Company Number: 2013US001501

PATIENT
  Age: 20 Year
  Sex: Male
  Weight: 111 kg

DRUGS (3)
  1. ICLUSIG [Suspect]
     Indication: CHRONIC MYELOID LEUKAEMIA
     Route: 048
     Dates: start: 20130409, end: 20130418
  2. ACYCLOVIR [Concomitant]
  3. PREDNISONE [Concomitant]

REACTIONS (1)
  - Hepatic enzyme increased [None]
